FAERS Safety Report 12448927 (Version 1)
Quarter: 2016Q2

REPORT INFORMATION
  Report Type: Spontaneous
  Country: RU (occurrence: RU)
  Receive Date: 20160608
  Receipt Date: 20160608
  Transmission Date: 20160815
  Serious: Yes (Other)
  Sender: FDA-Public Use
  Company Number: RU-BAYER-2016-054533

PATIENT
  Age: 25 Year
  Sex: Female

DRUGS (2)
  1. CEFALEXIN [Interacting]
     Active Substance: CEPHALEXIN
     Indication: CHRONIC TONSILLITIS
     Dosage: 1 DF, QD
     Dates: start: 201603
  2. YARINA [Suspect]
     Active Substance: DROSPIRENONE\ETHINYL ESTRADIOL
     Dosage: UNK
     Route: 048

REACTIONS (4)
  - Abdominal pain lower [Recovered/Resolved]
  - Metrorrhagia [Recovered/Resolved]
  - Chronic tonsillitis [Recovered/Resolved]
  - Drug interaction [None]
